FAERS Safety Report 9843657 (Version 1)
Quarter: 2013Q4

REPORT INFORMATION
  Report Type: Spontaneous
  Country: US (occurrence: None)
  Receive Date: 20131223
  Receipt Date: 20131223
  Transmission Date: 20140711
  Serious: No
  Sender: FDA-Public Use
  Company Number: 220030LEO

PATIENT
  Age: 64 Year
  Sex: Male

DRUGS (6)
  1. PICATO GEL [Suspect]
     Indication: ACTINIC KERATOSIS
     Route: 061
     Dates: start: 20121229, end: 20121230
  2. DOXYCYCLINE (DOXYCYCLINE) [Concomitant]
  3. ENALAPRIL (ENALAPRIL) [Concomitant]
  4. PREDNISONE (PREDNISONE) [Concomitant]
  5. ASPIRIN (ACETYLSALICYLIC ACID) [Concomitant]
  6. CELEBREX (CELECOXIB) [Concomitant]

REACTIONS (4)
  - Application site pain [None]
  - Application site erythema [None]
  - Application site swelling [None]
  - Application site dryness [None]
